FAERS Safety Report 4917101-1 (Version None)
Quarter: 2006Q1

REPORT INFORMATION
  Report Type: 
  Country: None (occurrence: None)
  Receive Date: 20060214
  Receipt Date: 20060131
  Transmission Date: 20060701
  Serious: Yes (Hospitalization, Other)
  Sender: FDA-Public Use
  Company Number: JP200601002713

PATIENT
  Age: 32 Year
  Sex: Male
  Weight: 48 kg

DRUGS (5)
  1. ZYPREXA [Suspect]
     Indication: SCHIZOPHRENIA
     Dosage: SEE IMAGE
     Route: 048
     Dates: start: 20050613, end: 20050804
  2. ZYPREXA [Suspect]
     Indication: SCHIZOPHRENIA
     Dosage: SEE IMAGE
     Route: 048
     Dates: end: 20060101
  3. ZYPREXA [Suspect]
     Indication: SCHIZOPHRENIA
     Dosage: SEE IMAGE
     Route: 048
     Dates: start: 20050805, end: 20060117
  4. RISPERDAL [Concomitant]
  5. DEPAKENE (VALPROATE SODIUM) TABLET [Concomitant]

REACTIONS (4)
  - HEPATIC STEATOSIS [None]
  - HYPERLIPIDAEMIA [None]
  - LIVER DISORDER [None]
  - WEIGHT DECREASED [None]
